FAERS Safety Report 10090631 (Version 1)
Quarter: 2014Q2

REPORT INFORMATION
  Report Type: Spontaneous
  Country: TR (occurrence: TR)
  Receive Date: 20140421
  Receipt Date: 20140421
  Transmission Date: 20141212
  Serious: Yes (Other)
  Sender: FDA-Public Use
  Company Number: TR-009507513-1404TUR009159

PATIENT
  Sex: 0

DRUGS (3)
  1. RIBAVIRIN [Suspect]
     Indication: CHRONIC HEPATITIS C
     Dosage: UNK
     Route: 048
     Dates: start: 201302
  2. RIBAVIRIN [Suspect]
     Dosage: UNK
     Route: 048
     Dates: end: 201308
  3. TELAPREVIR [Suspect]
     Indication: CHRONIC HEPATITIS C
     Dosage: UNK
     Dates: start: 201302, end: 201308

REACTIONS (2)
  - Transfusion [Recovered/Resolved]
  - Anaemia [Recovered/Resolved]
